FAERS Safety Report 14099458 (Version 1)
Quarter: 2017Q4

REPORT INFORMATION
  Report Type: Spontaneous
  Country: US (occurrence: US)
  Receive Date: 20171017
  Receipt Date: 20171017
  Transmission Date: 20180321
  Serious: No
  Sender: FDA-Public Use
  Company Number: US-ALKERMES INC.-ALK-2017-003243

PATIENT
  Age: 47 Year
  Sex: Female
  Weight: 86.17 kg

DRUGS (4)
  1. ARISTADA [Suspect]
     Active Substance: ARIPIPRAZOLE LAUROXIL
     Indication: SCHIZOPHRENIA
     Dosage: 441 MG, QMO
     Route: 030
     Dates: start: 20170711
  2. ARISTADA [Suspect]
     Active Substance: ARIPIPRAZOLE LAUROXIL
     Dosage: 882 MG, QMO
     Route: 030
     Dates: start: 20170731
  3. ARIPIPRAZOLE. [Concomitant]
     Active Substance: ARIPIPRAZOLE
     Indication: SCHIZOPHRENIA
     Dosage: UNK UNK, QD
     Route: 048
     Dates: start: 201707
  4. ARIPIPRAZOLE. [Concomitant]
     Active Substance: ARIPIPRAZOLE
     Dosage: UNK UNK, QD
     Route: 048
     Dates: start: 201708

REACTIONS (4)
  - Delusion [Unknown]
  - Paranoia [Unknown]
  - Hallucinations, mixed [Unknown]
  - Product use issue [Unknown]

NARRATIVE: CASE EVENT DATE: 2017
